FAERS Safety Report 6110732-5 (Version None)
Quarter: 2009Q1

REPORT INFORMATION
  Report Type: 
  Country: None (occurrence: None)
  Receive Date: 20090303
  Receipt Date: 20090218
  Transmission Date: 20090719
  Serious: Yes (Hospitalization)
  Sender: FDA-Public Use
  Company Number: WSDF_00486

PATIENT
  Age: 26 Year
  Sex: Female
  Weight: 83 kg

DRUGS (1)
  1. WINRHO SDF [Suspect]
     Indication: FOETAL-MATERNAL HAEMORRHAGE
     Dosage: 4200 MCG ONCE IV
     Route: 042
     Dates: start: 20050708, end: 20050708

REACTIONS (11)
  - ANTI-ERYTHROCYTE ANTIBODY POSITIVE [None]
  - BREAST PAIN [None]
  - CHILLS [None]
  - DRUG EXPOSURE DURING PREGNANCY [None]
  - FEELING HOT [None]
  - FLUSHING [None]
  - HAEMOLYSIS [None]
  - HAEMOLYTIC TRANSFUSION REACTION [None]
  - MEDICATION ERROR [None]
  - MYALGIA [None]
  - OVERDOSE [None]
